FAERS Safety Report 7127809-8 (Version None)
Quarter: 2010Q4

REPORT INFORMATION
  Report Type: 
  Country: None (occurrence: None)
  Receive Date: 20101130
  Receipt Date: 20100104
  Transmission Date: 20110411
  Serious: No
  Sender: FDA-Public Use
  Company Number: 2010BI000331

PATIENT
  Sex: Female

DRUGS (1)
  1. TYSABRI [Suspect]
     Indication: MULTIPLE SCLEROSIS
     Route: 042
     Dates: start: 20080331

REACTIONS (6)
  - FACIAL PAIN [None]
  - HEADACHE [None]
  - MEMORY IMPAIRMENT [None]
  - ORAL HERPES [None]
  - PAIN [None]
  - PAIN IN JAW [None]
